FAERS Safety Report 4294791-0 (Version None)
Quarter: 2004Q1

REPORT INFORMATION
  Report Type: 
  Country: None (occurrence: None)
  Receive Date: 20040216
  Receipt Date: 20020909
  Transmission Date: 20041129
  Serious: No
  Sender: FDA-Public Use
  Company Number: US-GLAXOSMITHKLINE-A0380324A

PATIENT
  Age: 40 Year
  Sex: Female

DRUGS (4)
  1. LAMICTAL [Suspect]
     Dosage: 100MG EIGHT TIMES PER DAY
     Route: 048
  2. IMITREX [Concomitant]
  3. KEPPRA [Concomitant]
  4. UNKNOWN MEDICATION [Concomitant]

REACTIONS (6)
  - BLOOD CREATINE PHOSPHOKINASE INCREASED [None]
  - CONCUSSION [None]
  - DEPRESSION [None]
  - FALL [None]
  - MEMORY IMPAIRMENT [None]
  - MOOD ALTERED [None]
